FAERS Safety Report 14229918 (Version 1)
Quarter: 2017Q4

REPORT INFORMATION
  Report Type: Spontaneous
  Country: US (occurrence: None)
  Receive Date: 20171128
  Receipt Date: 20171128
  Transmission Date: 20180321
  Serious: Yes (Hospitalization, Disabling, Other)
  Sender: FDA-Public Use
  Company Number: None

PATIENT
  Sex: Male
  Weight: 79.38 kg

DRUGS (1)
  1. CLOPIDOGREL [Suspect]
     Active Substance: CLOPIDOGREL BISULFATE
     Indication: THROMBOSIS PROPHYLAXIS
     Dates: start: 20140418, end: 20160413

REACTIONS (8)
  - Contusion [None]
  - Suicidal ideation [None]
  - Seizure [None]
  - Therapy cessation [None]
  - Amnesia [None]
  - Depression [None]
  - Libido decreased [None]
  - Haemorrhagic stroke [None]
